FAERS Safety Report 10402899 (Version 1)
Quarter: 2014Q3

REPORT INFORMATION
  Report Type: Spontaneous
  Country: GB (occurrence: GB)
  Receive Date: 20140822
  Receipt Date: 20140822
  Transmission Date: 20150326
  Serious: Yes (Hospitalization, Disabling)
  Sender: FDA-Public Use
  Company Number: PHFR2014GB005684

PATIENT
  Age: 55 Year
  Sex: Male
  Weight: 68.4 kg

DRUGS (3)
  1. OMEPRAZOLE. [Concomitant]
     Active Substance: OMEPRAZOLE
     Dosage: UNK UKN, UNK
  2. ALLOPURINOL. [Concomitant]
     Active Substance: ALLOPURINOL
     Dosage: UNK UKN, UNK
  3. CLOZAPINE. [Suspect]
     Active Substance: CLOZAPINE
     Indication: SCHIZOPHRENIA, PARANOID TYPE
     Dosage: 500 MG
     Route: 048
     Dates: start: 20140429, end: 20140806

REACTIONS (7)
  - Aphasia [Not Recovered/Not Resolved]
  - Subdural haemorrhage [Recovered/Resolved with Sequelae]
  - Hemiparesis [Recovering/Resolving]
  - Syncope [Recovered/Resolved]
  - Reflexes abnormal [Unknown]
  - VIIth nerve paralysis [Unknown]
  - Confusional state [Recovering/Resolving]

NARRATIVE: CASE EVENT DATE: 20140805
